FAERS Safety Report 5692724-3 (Version None)
Quarter: 2008Q2

REPORT INFORMATION
  Report Type: 
  Country: None (occurrence: None)
  Receive Date: 20080402
  Receipt Date: 20080319
  Transmission Date: 20081010
  Serious: Yes (Death)
  Sender: FDA-Public Use
  Company Number: US-BAXTER-2008BH002575

PATIENT
  Sex: Male

DRUGS (3)
  1. MORPHINE SULFATE [Suspect]
     Indication: PAIN MANAGEMENT
     Route: 042
     Dates: start: 20060309
  2. PHENERGAN HCL [Concomitant]
     Indication: NAUSEA
     Route: 030
  3. LORTAB [Concomitant]
     Indication: PAIN

REACTIONS (3)
  - DEATH [None]
  - DEVICE MALFUNCTION [None]
  - DRUG TOXICITY [None]
